FAERS Safety Report 8597857 (Version 3)
Quarter: 2014Q1

REPORT INFORMATION
  Report Type: Spontaneous
  Country: US (occurrence: US)
  Receive Date: 20120605
  Receipt Date: 20140115
  Transmission Date: 20141002
  Serious: No
  Sender: FDA-Public Use
  Company Number: US-ASTRAZENECA-2012SE35265

PATIENT
  Age: 19025 Day
  Sex: Female

DRUGS (7)
  1. NEXIUM [Suspect]
     Indication: GASTROOESOPHAGEAL REFLUX DISEASE
     Dosage: ONCE A DAY
     Route: 048
     Dates: start: 1998, end: 2010
  2. NEXIUM [Suspect]
     Indication: GASTROOESOPHAGEAL REFLUX DISEASE
     Route: 048
     Dates: start: 20061219
  3. ACTONEL [Concomitant]
     Dates: start: 20061226
  4. LEXAPRO [Concomitant]
     Dates: start: 20071229
  5. OMEPRAZOLE [Concomitant]
     Dates: start: 20080827
  6. CYANOCOBALAM [Concomitant]
     Dates: start: 20090204
  7. PREDNISONE [Concomitant]
     Dates: start: 20100702

REACTIONS (8)
  - Osteoporosis [Unknown]
  - Arthritis [Unknown]
  - Bone pain [Unknown]
  - Multiple fractures [Unknown]
  - Scoliosis [Unknown]
  - Foot fracture [Unknown]
  - Exostosis [Unknown]
  - Neuritis [Unknown]
